FAERS Safety Report 13878802 (Version 1)
Quarter: 2017Q3

REPORT INFORMATION
  Report Type: Spontaneous
  Country: FR (occurrence: FR)
  Receive Date: 20170817
  Receipt Date: 20170817
  Transmission Date: 20171127
  Serious: Yes (Other)
  Sender: FDA-Public Use
  Company Number: FR-TEVA-797036ROM

PATIENT
  Age: 62 Year
  Sex: Female

DRUGS (1)
  1. AMOXICILLIN. [Suspect]
     Active Substance: AMOXICILLIN
     Indication: ODYNOPHAGIA
     Dosage: ONE DOSE ADMINISTERED
     Route: 048

REACTIONS (2)
  - Bronchospasm [Unknown]
  - Hypotension [Unknown]
